FAERS Safety Report 14352093 (Version 12)
Quarter: 2022Q1

REPORT INFORMATION
  Report Type: Report from Study
  Country: BE (occurrence: BE)
  Receive Date: 20180104
  Receipt Date: 20220302
  Transmission Date: 20220423
  Serious: Yes (Hospitalization, Other)
  Sender: FDA-Public Use
  Company Number: BE-002147023-PHHO2015BE014821

PATIENT
  Age: 67 Year
  Sex: Male
  Weight: 100 kg

DRUGS (25)
  1. OMEPRAZOLE SODIUM [Suspect]
     Active Substance: OMEPRAZOLE SODIUM
     Indication: Prophylaxis
     Dosage: 20 MILLIGRAM, QD (20 MG, QD)
     Route: 016
     Dates: start: 20150530, end: 20160112
  2. OMEPRAZOLE [Suspect]
     Active Substance: OMEPRAZOLE
     Indication: Prophylaxis
     Dosage: 20 MILLIGRAM, QD
     Dates: start: 20150530, end: 20160112
  3. MYCOPHENOLATE MOFETIL [Suspect]
     Active Substance: MYCOPHENOLATE MOFETIL
     Indication: Renal transplant
     Dosage: 1000 MILLIGRAM, QD ( 500 MG, BID)
     Route: 048
     Dates: start: 20150520, end: 20151117
  4. MYCOPHENOLATE MOFETIL [Suspect]
     Active Substance: MYCOPHENOLATE MOFETIL
     Indication: Renal transplant
     Dosage: 500 MILLIGRAM, BID
     Route: 048
     Dates: start: 20150520, end: 20151117
  5. MYCOPHENOLATE MOFETIL [Suspect]
     Active Substance: MYCOPHENOLATE MOFETIL
     Dosage: 500 MILLIGRAM, QD
     Route: 048
     Dates: start: 20150520, end: 20151117
  6. TACROLIMUS [Suspect]
     Active Substance: TACROLIMUS
     Indication: Renal transplant
     Dosage: 3 MILLIGRAM, QD ((3 MG, BID))
     Route: 065
     Dates: start: 20151231, end: 20160221
  7. TACROLIMUS [Suspect]
     Active Substance: TACROLIMUS
     Dosage: 7 MILLIGRAM, QD
     Route: 065
     Dates: start: 20150520, end: 20151117
  8. EZETIMIBE [Suspect]
     Active Substance: EZETIMIBE
     Indication: Hypercholesterolaemia
     Dosage: 10 MILLIGRAM, QD
     Route: 065
     Dates: start: 20150602, end: 20160204
  9. SODIUM BICARBONATE [Suspect]
     Active Substance: SODIUM BICARBONATE
     Indication: Acidosis
     Dosage: 10 MILLIGRAM, QD (10 MG, QD)
     Route: 065
     Dates: start: 20150602
  10. SODIUM BICARBONATE [Suspect]
     Active Substance: SODIUM BICARBONATE
     Dosage: 10 MILLIGRAM
     Dates: start: 20150702
  11. ENALAPRIL [Suspect]
     Active Substance: ENALAPRIL
     Indication: Hypertension
     Dosage: 5 MILLIGRAM, QD
     Route: 065
     Dates: start: 20150818, end: 20160112
  12. CEFUROXIME [Suspect]
     Active Substance: CEFUROXIME
     Indication: Infection
     Dosage: UNK
     Route: 065
     Dates: start: 20160119, end: 20160120
  13. SOLU-MEDROL [Suspect]
     Active Substance: METHYLPREDNISOLONE SODIUM SUCCINATE
     Indication: Renal transplant
     Dosage: UNK
     Route: 065
  14. METHYLPREDNISOLONE [Suspect]
     Active Substance: METHYLPREDNISOLONE
     Indication: Renal transplant
     Dosage: 800 MILLIGRAM, QD
     Route: 065
     Dates: start: 20150519
  15. METHYLPREDNISOLONE [Suspect]
     Active Substance: METHYLPREDNISOLONE
     Dosage: 4 MILLIGRAM, QD
     Route: 065
     Dates: start: 20150519
  16. METHYLPREDNISOLONE [Suspect]
     Active Substance: METHYLPREDNISOLONE
     Dosage: 8 MILLIGRAM, QD
     Route: 065
  17. METHYLPREDNISOLONE [Suspect]
     Active Substance: METHYLPREDNISOLONE
     Dosage: UNK
     Route: 065
  18. TACROLIMUS [Suspect]
     Active Substance: TACROLIMUS
     Indication: Renal transplant
     Dosage: 7 MILLIGRAM, QD (3.5 MG, BID)
     Route: 065
     Dates: start: 20150520, end: 20151117
  19. EZETIMIBE\SIMVASTATIN [Suspect]
     Active Substance: EZETIMIBE\SIMVASTATIN
     Indication: Hypercholesterolaemia
     Dosage: 10 MILLIGRAM, QD
     Route: 016
     Dates: start: 20150602, end: 20160204
  20. MEDROL [Suspect]
     Active Substance: METHYLPREDNISOLONE
     Indication: Renal transplant
     Dosage: 8 MILLIGRAM, QD
     Route: 016
     Dates: start: 20150519
  21. CELLCEPT [Suspect]
     Active Substance: MYCOPHENOLATE MOFETIL
     Indication: Renal transplant
     Dosage: 500 MILLIGRAM, QD (500 MG, BID  )
     Route: 048
     Dates: start: 20150520, end: 20151117
  22. NEORAL [Concomitant]
     Active Substance: CYCLOSPORINE
     Indication: Renal transplant
     Dosage: 200 MILLIGRAM, QD (100 MG, BID)
     Route: 065
     Dates: start: 20160227
  23. LEVOTHYROXINE [Concomitant]
     Active Substance: LEVOTHYROXINE
     Indication: Hypothyroidism
     Dosage: 100 MICROGRAM, QD
     Route: 016
     Dates: start: 20090731
  24. INSULIN ASPART [Concomitant]
     Active Substance: INSULIN ASPART
     Indication: Product used for unknown indication
     Dosage: 36 DOSAGE FORM, QD
     Route: 065
     Dates: start: 20060101
  25. SODIUM BICARBONATE [Concomitant]
     Active Substance: SODIUM BICARBONATE
     Indication: Acidosis
     Dosage: 10 MILLIGRAM, QD
     Route: 065
     Dates: start: 20150602

REACTIONS (5)
  - Osteitis [Recovered/Resolved]
  - Bronchopneumopathy [Recovered/Resolved]
  - Lymphangitis [Not Recovered/Not Resolved]
  - Neutropenia [Not Recovered/Not Resolved]
  - Necrosis [Recovered/Resolved]

NARRATIVE: CASE EVENT DATE: 20150921
